FAERS Safety Report 8735836 (Version 2)
Quarter: 2012Q4

REPORT INFORMATION
  Report Type: Report from Study
  Country: AU (occurrence: AU)
  Receive Date: 20120822
  Receipt Date: 20120926
  Transmission Date: 20130627
  Serious: Yes (Death)
  Sender: FDA-Public Use
  Company Number: AU-PFIZER INC-2012202655

PATIENT
  Age: 45 Year
  Sex: Female

DRUGS (6)
  1. CRIZOTINIB [Suspect]
     Indication: NON-SMALL CELL LUNG CANCER
     Dosage: 250 mg, 2x/day
     Route: 048
     Dates: start: 20120810
  2. CLEXANE [Concomitant]
     Indication: DEEP VEIN THROMBOSIS
     Dosage: 80 mg, 2x/day
     Route: 058
  3. CLEXANE [Concomitant]
     Indication: PULMONARY EMBOLISM
  4. OXYCONTIN [Concomitant]
     Indication: PAIN
     Dosage: 80 mg, 2x/day
     Route: 048
  5. OXYNORM [Concomitant]
     Indication: PAIN
     Dosage: 20 mg, as needed
     Route: 048
  6. DEXAMETHASONE [Concomitant]
     Dosage: 4 mg, 1x/day
     Route: 048

REACTIONS (1)
  - Cardiac arrest [Fatal]
